FAERS Safety Report 7687785-6 (Version None)
Quarter: 2011Q3

REPORT INFORMATION
  Report Type: 
  Country: None (occurrence: None)
  Receive Date: 20110817
  Receipt Date: 20110805
  Transmission Date: 20111222
  Serious: Yes (Hospitalization)
  Sender: FDA-Public Use
  Company Number: FR-RANBAXY-2011RR-46795

PATIENT
  Age: 17 Year
  Sex: Female

DRUGS (2)
  1. LOPERAMIDE HCL [Suspect]
     Indication: OVERDOSE
     Dosage: 18 MG, UNK
     Route: 065
  2. TRIMEBUTINE [Suspect]
     Indication: PRODUCT USED FOR UNKNOWN INDICATION
     Route: 065

REACTIONS (2)
  - PANCREATIC ENZYMES INCREASED [None]
  - OVERDOSE [None]
